FAERS Safety Report 11227395 (Version 1)
Quarter: 2015Q2

REPORT INFORMATION
  Report Type: Report from Study
  Country: US (occurrence: US)
  Receive Date: 20150630
  Receipt Date: 20150630
  Transmission Date: 20150821
  Serious: Yes (Death, Hospitalization)
  Sender: FDA-Public Use
  Company Number: US-ASTELLAS-2015US018122

PATIENT
  Sex: Female

DRUGS (1)
  1. ERLOTINIB [Suspect]
     Active Substance: ERLOTINIB
     Indication: HEPATIC CANCER
     Route: 048

REACTIONS (7)
  - General physical health deterioration [Unknown]
  - Mental status changes [Unknown]
  - Death [Fatal]
  - Urinary tract infection [Unknown]
  - Mouth haemorrhage [Unknown]
  - Off label use [Unknown]
  - Rales [Unknown]
